FAERS Safety Report 6634511-5 (Version None)
Quarter: 2010Q1

REPORT INFORMATION
  Report Type: 
  Country: None (occurrence: None)
  Receive Date: 20100311
  Receipt Date: 20100311
  Transmission Date: 20100710
  Serious: Yes (Hospitalization)
  Sender: FDA-Public Use
  Company Number: None

PATIENT
  Sex: Male
  Weight: 83.0083 kg

DRUGS (3)
  1. PLAVIX [Suspect]
     Dosage: 75MG DAILY PO
     Route: 048
     Dates: start: 20081118, end: 20100310
  2. ASPIRIN [Suspect]
     Dosage: 325MG DAILY PO
     Route: 048
  3. XIENCE V EVEROLIMUS ELUTING CORONARY STENT [Suspect]

REACTIONS (9)
  - ABSCESS LIMB [None]
  - ASPIRATION [None]
  - BACK PAIN [None]
  - CELLULITIS [None]
  - HYPOTENSION [None]
  - NECK PAIN [None]
  - RASH [None]
  - SEPSIS [None]
  - VENTRICULAR FIBRILLATION [None]
